FAERS Safety Report 5899496-8 (Version None)
Quarter: 2008Q3

REPORT INFORMATION
  Report Type: 
  Country: None (occurrence: None)
  Receive Date: 20080924
  Receipt Date: 20080825
  Transmission Date: 20090109
  Serious: Yes (Hospitalization)
  Sender: FDA-Public Use
  Company Number: 2008-00001-207

PATIENT
  Sex: Male
  Weight: 75 kg

DRUGS (2)
  1. PEG-IFN A-2B INJ WEEKLY [Suspect]
     Indication: HEPATITIS C
     Dosage: INJ WEEKLY
  2. RIBAVIRIN [Suspect]
     Dosage: 200MG/TAB BID PO
     Route: 048

REACTIONS (1)
  - PYREXIA [None]
